FAERS Safety Report 9131210 (Version 3)
Quarter: 2014Q1

REPORT INFORMATION
  Report Type: Report from Study
  Country: IT (occurrence: IT)
  Receive Date: 20130301
  Receipt Date: 20140110
  Transmission Date: 20141002
  Serious: Yes (Hospitalization)
  Sender: FDA-Public Use
  Company Number: PHHO2012IT016606

PATIENT
  Sex: 0

DRUGS (5)
  1. AMN107 [Suspect]
     Indication: METASTATIC MALIGNANT MELANOMA
     Dosage: 400 MG, BID
     Route: 048
     Dates: start: 20120118, end: 20121111
  2. AMN107 [Suspect]
     Dosage: NO TREATMENT
     Dates: start: 20121112, end: 20130217
  3. AMN107 [Suspect]
     Dosage: 400 MG, BID
     Route: 048
     Dates: start: 20130218
  4. CLARVISAN [Concomitant]
     Indication: CATARACT
     Dosage: 2 DF, (1-2 DROPS DAILY)
     Dates: start: 20111123
  5. COSOPT [Concomitant]
     Indication: PROPHYLAXIS
     Dosage: 2 DF, (1-2 DROPS DAILY)
     Dates: start: 20111123

REACTIONS (2)
  - Myocardial infarction [Recovered/Resolved]
  - Arrhythmia [Recovered/Resolved]
